FAERS Safety Report 7463613-9 (Version None)
Quarter: 2011Q2

REPORT INFORMATION
  Report Type: 
  Country: None (occurrence: None)
  Receive Date: 20110506
  Receipt Date: 20110425
  Transmission Date: 20111010
  Serious: Yes (Other)
  Sender: FDA-Public Use
  Company Number: US-ELI_LILLY_AND_COMPANY-US201103000446

PATIENT
  Sex: Female

DRUGS (3)
  1. FORTEO [Suspect]
     Dosage: 20 UG, DAILY (1/D)
     Route: 065
  2. FORTEO [Suspect]
     Dosage: 20 UG, DAILY (1/D)
     Route: 065
  3. FORTEO [Suspect]
     Indication: OSTEOPOROSIS
     Dosage: 20 UG, DAILY (1/D)
     Route: 065
     Dates: start: 20100201

REACTIONS (9)
  - ERYTHEMA [None]
  - LIMB OPERATION [None]
  - PAIN IN EXTREMITY [None]
  - NERVE INJURY [None]
  - MUSCULAR WEAKNESS [None]
  - FEAR [None]
  - WEIGHT INCREASED [None]
  - MOVEMENT DISORDER [None]
  - ARTHRALGIA [None]
